FAERS Safety Report 10915993 (Version 1)
Quarter: 2015Q1

REPORT INFORMATION
  Report Type: Spontaneous
  Country: US (occurrence: US)
  Receive Date: 20150316
  Receipt Date: 20150316
  Transmission Date: 20150721
  Serious: Yes (Other)
  Sender: FDA-Public Use
  Company Number: US-BAYER-2015-038930

PATIENT
  Age: 36 Year
  Sex: Female

DRUGS (1)
  1. MIRENA [Suspect]
     Active Substance: LEVONORGESTREL
     Dosage: 20 MCG/24HR, CONT
     Route: 015
     Dates: start: 201010, end: 20120209

REACTIONS (5)
  - Medical device pain [None]
  - Abdominal pain [None]
  - Injury [None]
  - Device dislocation [None]
  - Uterine haemorrhage [None]

NARRATIVE: CASE EVENT DATE: 201202
